FAERS Safety Report 5398819-6 (Version None)
Quarter: 2007Q3

REPORT INFORMATION
  Report Type: 
  Country: None (occurrence: None)
  Receive Date: 20070725
  Receipt Date: 20070725
  Transmission Date: 20080115
  Serious: Yes (Hospitalization)
  Sender: FDA-Public Use
  Company Number: None

PATIENT
  Age: 46 Year
  Sex: Female
  Weight: 58.4233 kg

DRUGS (1)
  1. VESIPAQUE TAB [Suspect]
     Indication: ILL-DEFINED DISORDER
     Dosage: 110 CC ONE TIME IV
     Route: 042
     Dates: start: 20070531

REACTIONS (2)
  - HYPERTENSION [None]
  - WHITE BLOOD CELL COUNT DECREASED [None]
